FAERS Safety Report 10196661 (Version 1)
Quarter: 2014Q2

REPORT INFORMATION
  Report Type: Spontaneous
  Country: CA (occurrence: CA)
  Receive Date: 20140527
  Receipt Date: 20140527
  Transmission Date: 20141212
  Serious: Yes (Disabling)
  Sender: FDA-Public Use
  Company Number: CA-009507513-1405CAN010484

PATIENT
  Age: 56 Year
  Sex: Male

DRUGS (1)
  1. ZOCOR [Suspect]
     Dosage: 1 EVERY 1 DAY
     Route: 048

REACTIONS (1)
  - Diplopia [Recovering/Resolving]
